FAERS Safety Report 12658183 (Version 1)
Quarter: 2016Q3

REPORT INFORMATION
  Report Type: Spontaneous
  Country: US (occurrence: US)
  Receive Date: 20160817
  Receipt Date: 20160817
  Transmission Date: 20161109
  Serious: No
  Sender: FDA-Public Use
  Company Number: US-BEH-2016072165

PATIENT
  Sex: Female
  Weight: 72.56 kg

DRUGS (43)
  1. ZOFRAN [Concomitant]
     Active Substance: ONDANSETRON HYDROCHLORIDE
  2. TOFRANIL [Concomitant]
     Active Substance: IMIPRAMINE HYDROCHLORIDE
  3. VITAMIN B12 [Concomitant]
     Active Substance: CYANOCOBALAMIN
  4. TIZANIDINE                         /00740702/ [Concomitant]
     Active Substance: TIZANIDINE HYDROCHLORIDE
  5. BYSTOLIC [Concomitant]
     Active Substance: NEBIVOLOL HYDROCHLORIDE
  6. KLOR-CON [Concomitant]
     Active Substance: POTASSIUM CHLORIDE
  7. POTASSIUM CHLORIDE AND SODIUM CHLORIDE [Concomitant]
  8. LYRICA [Concomitant]
     Active Substance: PREGABALIN
  9. CALCIUM                            /00060701/ [Concomitant]
     Active Substance: CALCIUM
  10. HIZENTRA [Suspect]
     Active Substance: HUMAN IMMUNOGLOBULIN G
     Indication: FATIGUE
     Dosage: 10 G, QW
     Route: 058
     Dates: start: 20150216
  11. RELISTOR [Concomitant]
     Active Substance: METHYLNALTREXONE BROMIDE
  12. BENTYL [Concomitant]
     Active Substance: DICYCLOMINE HYDROCHLORIDE
  13. KLONOPIN [Concomitant]
     Active Substance: CLONAZEPAM
  14. NALTREXONE [Concomitant]
     Active Substance: NALTREXONE
  15. AMRIX [Concomitant]
     Active Substance: CYCLOBENZAPRINE HYDROCHLORIDE
  16. LAMICTAL [Concomitant]
     Active Substance: LAMOTRIGINE
  17. ATIVAN [Concomitant]
     Active Substance: LORAZEPAM
  18. METAXALONE. [Concomitant]
     Active Substance: METAXALONE
  19. HIZENTRA [Suspect]
     Active Substance: HUMAN IMMUNOGLOBULIN G
     Indication: SEIZURE
  20. FIXMYSKIN HEALING BALM VANILLA FRAGRANCE [Concomitant]
     Active Substance: HYDROCORTISONE
  21. CYTOMEL [Concomitant]
     Active Substance: LIOTHYRONINE SODIUM
  22. LASIX [Concomitant]
     Active Substance: FUROSEMIDE
  23. DETROL [Concomitant]
     Active Substance: TOLTERODINE TARTRATE
  24. ACETAMINOPHEN. [Concomitant]
     Active Substance: ACETAMINOPHEN
  25. HIZENTRA [Suspect]
     Active Substance: HUMAN IMMUNOGLOBULIN G
     Indication: PALPITATIONS
  26. PERCOCET                           /00446701/ [Concomitant]
     Active Substance: ACETAMINOPHEN\OXYCODONE HYDROCHLORIDE\OXYCODONE TEREPHTHALATE
  27. CELEBREX [Concomitant]
     Active Substance: CELECOXIB
  28. SYNTHROID [Concomitant]
     Active Substance: LEVOTHYROXINE SODIUM
  29. HIZENTRA [Suspect]
     Active Substance: HUMAN IMMUNOGLOBULIN G
     Indication: AUTOIMMUNE THYROIDITIS
  30. METHADONE [Concomitant]
     Active Substance: METHADONE HYDROCHLORIDE
  31. NORCO [Concomitant]
     Active Substance: ACETAMINOPHEN\HYDROCODONE BITARTRATE
  32. QSYMIA [Concomitant]
     Active Substance: PHENTERMINE HYDROCHLORIDE\TOPIRAMATE
  33. PRISTIQ EXTENDED-RELEASE [Concomitant]
     Active Substance: DESVENLAFAXINE SUCCINATE
  34. PRAMLINTIDE [Concomitant]
     Active Substance: PRAMLINTIDE
  35. FLUDROCORTISONE [Concomitant]
     Active Substance: FLUDROCORTISONE
  36. SOLU-CORTEF [Concomitant]
     Active Substance: HYDROCORTISONE SODIUM SUCCINATE
  37. TRAZODONE                          /00447702/ [Concomitant]
     Active Substance: TRAZODONE HYDROCHLORIDE
  38. MIRALAX [Concomitant]
     Active Substance: POLYETHYLENE GLYCOL 3350
  39. DULCOLAX (BISACODYL) [Concomitant]
     Active Substance: BISACODYL
  40. AMITRIPTYLINE [Concomitant]
     Active Substance: AMITRIPTYLINE
  41. ELMIRON [Concomitant]
     Active Substance: PENTOSAN POLYSULFATE SODIUM
  42. PYRIDIUM [Concomitant]
     Active Substance: PHENAZOPYRIDINE
  43. SPIRONOLACTONE. [Concomitant]
     Active Substance: SPIRONOLACTONE

REACTIONS (3)
  - Pain [Unknown]
  - Infusion site bruising [Unknown]
  - Fatigue [Unknown]
